FAERS Safety Report 8602542-1 (Version None)
Quarter: 2012Q3

REPORT INFORMATION
  Report Type: 
  Country: None (occurrence: None)
  Receive Date: 20120817
  Receipt Date: 20120813
  Transmission Date: 20120928
  Serious: Yes (Hospitalization, Other)
  Sender: FDA-Public Use
  Company Number: PHEH2012US015424

PATIENT
  Sex: Female
  Weight: 48.98 kg

DRUGS (23)
  1. DICYCLOMINE [Concomitant]
     Dosage: 10 MG, UNK
     Route: 048
  2. DIGOXIN [Concomitant]
     Indication: ATRIAL FIBRILLATION
     Dosage: 0.125 MG, QD
     Route: 048
  3. METOPROLOL TARTRATE [Concomitant]
     Indication: BLOOD PRESSURE
     Dosage: 50 MG, QD
     Route: 048
  4. PREDNISONE TAB [Concomitant]
     Dosage: 2.5 MG, QD
     Dates: start: 20120227
  5. RECLAST [Suspect]
     Indication: OSTEOPOROSIS
     Dosage: 5 MG, UNK
     Route: 042
     Dates: start: 20110909
  6. XANAX [Concomitant]
     Dosage: 0.25 MG, QD
     Dates: start: 20120227
  7. DOXYCYCLINE HCL [Concomitant]
     Dosage: UNK UKN, UNK
  8. PREDNISONE TAB [Concomitant]
     Dosage: 10 MG, FOR 3 DAYS
  9. CALCIUM WITH VITAMIN D [Concomitant]
     Dosage: 600 MG, BID
     Dates: start: 20090112
  10. PREDNISONE TAB [Concomitant]
     Indication: ARTHRITIS
     Dosage: 2.5 MG, QD
     Route: 048
  11. VITAMIN D [Concomitant]
     Dosage: UNK UKN, UNK
  12. FISH OIL [Concomitant]
     Dosage: 1000 MG, QD
     Route: 048
  13. ZOFRAN [Concomitant]
     Indication: NAUSEA
     Dosage: UNK UKN, UNK
  14. ONDANSETRON [Concomitant]
     Indication: NAUSEA
     Dosage: 4 MG, TID
     Route: 048
  15. ALPRAZOLAM [Concomitant]
     Indication: FIBROMYALGIA
     Dosage: 0.25 MG, QD, BEDTIME
     Route: 048
  16. ASPIRIN [Concomitant]
     Dosage: 81 MG, QD
     Route: 048
  17. CARBATROL [Concomitant]
     Dosage: 100 MG, UNK
  18. METOPROLOL SUCCINATE [Concomitant]
     Dosage: 25 MG, QD
  19. VITAMIN D [Concomitant]
     Indication: ARTHRITIS
     Dosage: 400 MG, BID
     Route: 048
  20. BENZODIAZEPINES [Concomitant]
     Indication: NAUSEA
  21. TYLENOL [Concomitant]
     Indication: PAIN
     Dosage: 650 MG, 4 HRS PRN,
  22. TYLENOL W/ CODEINE [Concomitant]
     Indication: PAIN
     Dosage: UNK UKN, PRN
  23. PRILOSEC [Concomitant]
     Dosage: 20 MG, UNK

REACTIONS (19)
  - IRRITABLE BOWEL SYNDROME [None]
  - BLOOD PRESSURE DECREASED [None]
  - PRESYNCOPE [None]
  - DIZZINESS [None]
  - ABDOMINAL PAIN LOWER [None]
  - JAW DISORDER [None]
  - PYREXIA [None]
  - GASTROINTESTINAL PAIN [None]
  - BLADDER SPASM [None]
  - OESOPHAGEAL SPASM [None]
  - TENDERNESS [None]
  - OEDEMA PERIPHERAL [None]
  - ATRIAL FIBRILLATION [None]
  - APHASIA [None]
  - NAUSEA [None]
  - DEHYDRATION [None]
  - WEIGHT DECREASED [None]
  - ARTHRALGIA [None]
  - VOMITING [None]
